FAERS Safety Report 25532990 (Version 1)
Quarter: 2025Q3

REPORT INFORMATION
  Report Type: Spontaneous
  Country: EU (occurrence: EU)
  Receive Date: 20250709
  Receipt Date: 20250709
  Transmission Date: 20251021
  Serious: Yes (Other)
  Sender: TEVA
  Company Number: None

PATIENT
  Age: 58 Year
  Sex: Female
  Weight: 47 kg

DRUGS (1)
  1. RISPERIDONE [Suspect]
     Active Substance: RISPERIDONE
     Indication: Hypersensitivity
     Dosage: 1X PER DAG 1 STUKS, RISPERIDON TABLET OMHULD 1MG / BRAND NAME NOT SPECIFIED
     Route: 048
     Dates: start: 20250528

REACTIONS (1)
  - Neuropathy peripheral [Not Recovered/Not Resolved]
